FAERS Safety Report 15271495 (Version 1)
Quarter: 2018Q3

REPORT INFORMATION
  Report Type: Spontaneous
  Country: US (occurrence: US)
  Receive Date: 20180727
  Receipt Date: 20180727
  Transmission Date: 20181010
  Serious: No
  Sender: FDA-Public Use
  Company Number: None

PATIENT
  Age: 50 Year
  Sex: Male

DRUGS (17)
  1. AMIODARONE [Concomitant]
     Active Substance: AMIODARONE
  2. BUMETANIDE. [Concomitant]
     Active Substance: BUMETANIDE
  3. DIGOXIN. [Concomitant]
     Active Substance: DIGOXIN
  4. HYDRALAZINE [Concomitant]
     Active Substance: HYDRALAZINE HYDROCHLORIDE
  5. VALSARTAN. [Concomitant]
     Active Substance: VALSARTAN
  6. ACETAMINOPHEN. [Concomitant]
     Active Substance: ACETAMINOPHEN
  7. MEXILETINE [Concomitant]
     Active Substance: MEXILETINE
  8. DOXYCYCLINE. [Concomitant]
     Active Substance: DOXYCYCLINE
  9. HYDROMORPHONE [Concomitant]
     Active Substance: HYDROMORPHONE
  10. ASPIRIN. [Concomitant]
     Active Substance: ASPIRIN
  11. TAMSULOSIN [Concomitant]
     Active Substance: TAMSULOSIN
  12. FEBUXOSTAT. [Concomitant]
     Active Substance: FEBUXOSTAT
  13. WARFARIN [Suspect]
     Active Substance: WARFARIN
     Indication: THROMBOCYTOSIS
     Route: 048
     Dates: start: 20160401, end: 20180519
  14. COLCHICINE. [Concomitant]
     Active Substance: COLCHICINE
  15. FAMOTIDINE. [Concomitant]
     Active Substance: FAMOTIDINE
  16. GABAPENTIN. [Concomitant]
     Active Substance: GABAPENTIN
  17. METHYLPREDNISOLONE. [Concomitant]
     Active Substance: METHYLPREDNISOLONE

REACTIONS (5)
  - Memory impairment [None]
  - Headache [None]
  - Delirium [None]
  - Aphasia [None]
  - Therapy change [None]

NARRATIVE: CASE EVENT DATE: 20180521
